FAERS Safety Report 10807440 (Version 1)
Quarter: 2015Q1

REPORT INFORMATION
  Report Type: Report from Study
  Country: US (occurrence: US)
  Receive Date: 20150217
  Receipt Date: 20150217
  Transmission Date: 20150721
  Serious: No
  Sender: FDA-Public Use
  Company Number: US-ABBVIE-14K-163-1267490-00

PATIENT
  Sex: Female
  Weight: 131.66 kg

DRUGS (5)
  1. HUMIRA [Suspect]
     Active Substance: ADALIMUMAB
     Indication: RHEUMATOID ARTHRITIS
     Dosage: PFS
     Route: 058
     Dates: start: 2010, end: 2011
  2. HUMIRA [Suspect]
     Active Substance: ADALIMUMAB
     Dosage: PFS
     Route: 058
     Dates: start: 2011, end: 201404
  3. HUMIRA [Suspect]
     Active Substance: ADALIMUMAB
     Dosage: PFS
     Route: 058
     Dates: start: 201405
  4. MULTIPLE UNKNOWN MEDICATIONS [Concomitant]
     Active Substance: UNSPECIFIED INGREDIENT
     Indication: PRODUCT USED FOR UNKNOWN INDICATION
  5. HUMIRA [Suspect]
     Active Substance: ADALIMUMAB
     Indication: RHEUMATOID ARTHRITIS
     Route: 058
     Dates: start: 2009, end: 2010

REACTIONS (2)
  - Sinusitis [Recovered/Resolved]
  - Injection site bruising [Recovered/Resolved]

NARRATIVE: CASE EVENT DATE: 2009
